FAERS Safety Report 13395152 (Version 3)
Quarter: 2017Q2

REPORT INFORMATION
  Report Type: Spontaneous
  Country: DE (occurrence: DE)
  Receive Date: 20170403
  Receipt Date: 20170518
  Transmission Date: 20170830
  Serious: Yes (Other)
  Sender: FDA-Public Use
  Company Number: DE-TORRENT-00006324

PATIENT
  Sex: Female

DRUGS (1)
  1. TELMISARTAN. [Suspect]
     Active Substance: TELMISARTAN

REACTIONS (2)
  - Granuloma [Unknown]
  - Dyspnoea [Unknown]
